FAERS Safety Report 6639662-7 (Version None)
Quarter: 2010Q1

REPORT INFORMATION
  Report Type: 
  Country: None (occurrence: None)
  Receive Date: 20100315
  Receipt Date: 20100302
  Transmission Date: 20100710
  Serious: Yes (Other)
  Sender: FDA-Public Use
  Company Number: 006117

PATIENT
  Age: 75 Year
  Sex: Female

DRUGS (1)
  1. KEPPRA [Suspect]
     Indication: EPILEPSY
     Dosage: 500 MG BID ORAL
     Route: 048
     Dates: start: 20080201

REACTIONS (7)
  - AFFECTIVE DISORDER [None]
  - AGORAPHOBIA [None]
  - ANXIETY [None]
  - ASOCIAL BEHAVIOUR [None]
  - CLAUSTROPHOBIA [None]
  - MORBID THOUGHTS [None]
  - SUICIDAL IDEATION [None]
